FAERS Safety Report 9637805 (Version 1)
Quarter: 2013Q4

REPORT INFORMATION
  Report Type: Spontaneous
  Country: US (occurrence: None)
  Receive Date: 20131018
  Receipt Date: 20131018
  Transmission Date: 20140711
  Serious: Yes (Disabling)
  Sender: FDA-Public Use
  Company Number: 7242226

PATIENT
  Age: 64 Year
  Sex: Female

DRUGS (2)
  1. LEVOTHYROX [Suspect]
     Indication: HYPOTHYROIDISM
     Dosage: 1 DEF (1 DF, 1 IN-2)
     Route: 048
     Dates: start: 200305
  2. TASIGNA [Suspect]
     Indication: CHRONIC MYELOID LEUKAEMIA
     Route: 048
     Dates: start: 20110706

REACTIONS (4)
  - Pain in extremity [None]
  - Intermittent claudication [None]
  - Peripheral arterial occlusive disease [None]
  - Asthenia [None]
